FAERS Safety Report 7936600-1 (Version None)
Quarter: 2011Q4

REPORT INFORMATION
  Report Type: 
  Country: None (occurrence: None)
  Receive Date: 20111123
  Receipt Date: 20111117
  Transmission Date: 20120403
  Serious: Yes (Death)
  Sender: FDA-Public Use
  Company Number: CA-PFIZER INC-2011285335

PATIENT
  Age: 65 Year
  Sex: Male

DRUGS (2)
  1. MORPHINE SULFATE [Suspect]
     Indication: PRODUCT USED FOR UNKNOWN INDICATION
  2. SANDOSTATIN [Suspect]
     Indication: PRODUCT USED FOR UNKNOWN INDICATION
     Dosage: 20 MG, MONTHLY
     Route: 030

REACTIONS (1)
  - CONFUSIONAL STATE [None]
